FAERS Safety Report 12449232 (Version 2)
Quarter: 2016Q2

REPORT INFORMATION
  Report Type: Report from Study
  Country: TR (occurrence: TR)
  Receive Date: 20160608
  Receipt Date: 20160614
  Transmission Date: 20160815
  Serious: Yes (Death, Life-Threatening, Hospitalization, Other)
  Sender: FDA-Public Use
  Company Number: TR-ABBVIE-16P-161-1645031-00

PATIENT
  Age: 74 Year
  Sex: Male

DRUGS (8)
  1. DASABUVIR [Suspect]
     Active Substance: DASABUVIR
     Indication: HEPATITIS C
     Route: 048
     Dates: start: 20151223, end: 20160315
  2. KAPRIL [Concomitant]
     Indication: HYPERTENSION
     Route: 048
     Dates: start: 20150828
  3. SANELOC [Concomitant]
     Indication: HYPERTENSION
     Route: 048
     Dates: start: 20150828
  4. OMBITASVIR/PARITAPREVIR/RITONAVIR [Suspect]
     Active Substance: OMBITASVIR\PARITAPREVIR\RITONAVIR
     Indication: HEPATITIS C
     Dosage: 150/100/25 MG QD
     Route: 048
     Dates: start: 20151223, end: 20160315
  5. RIBAVIRIN. [Suspect]
     Active Substance: RIBAVIRIN
     Indication: HEPATITIS C
     Dosage: DIVIDED TWICE DAILY (TOTAL DAILY DOSE: 1200 MG)
     Route: 048
     Dates: start: 20151223, end: 20160110
  6. ALDACTAZIDE [Concomitant]
     Active Substance: HYDROCHLOROTHIAZIDE\SPIRONOLACTONE
     Indication: HYPERTENSION
     Route: 048
     Dates: start: 20150828
  7. RIBAVIRIN. [Suspect]
     Active Substance: RIBAVIRIN
     Dosage: DIVIDED TWICE DAILY (TOTAL DAILY DOSE: 800 MG)
     Route: 048
     Dates: start: 20160111, end: 20160315
  8. VASTAREL [Concomitant]
     Active Substance: TRIMETAZIDINE DIHYDROCHLORIDE
     Indication: ATRIAL FIBRILLATION
     Route: 048
     Dates: start: 20150928

REACTIONS (1)
  - Cerebral artery embolism [Fatal]

NARRATIVE: CASE EVENT DATE: 20160531
